FAERS Safety Report 5619573-6 (Version None)
Quarter: 2008Q1

REPORT INFORMATION
  Report Type: 
  Country: None (occurrence: None)
  Receive Date: 20080205
  Receipt Date: 20080205
  Transmission Date: 20080703
  Serious: Yes (Life-Threatening)
  Sender: FDA-Public Use
  Company Number: None

PATIENT
  Age: 42 Year
  Sex: Male
  Weight: 95.2554 kg

DRUGS (1)
  1. CYMBALTA [Suspect]
     Indication: MIGRAINE
     Dosage: 30 MG ONCE DAILY PO
     Route: 048
     Dates: start: 20070919, end: 20080127

REACTIONS (4)
  - DISORIENTATION [None]
  - PAIN [None]
  - SUICIDAL IDEATION [None]
  - VISUAL DISTURBANCE [None]
